FAERS Safety Report 15770556 (Version 2)
Quarter: 2019Q1

REPORT INFORMATION
  Report Type: Spontaneous
  Country: JP (occurrence: JP)
  Receive Date: 20181228
  Receipt Date: 20190124
  Transmission Date: 20190417
  Serious: Yes (Death, Other)
  Sender: FDA-Public Use
  Company Number: JP-ELI_LILLY_AND_COMPANY-JP201812011569

PATIENT
  Age: 89 Year
  Sex: Male

DRUGS (1)
  1. ERBITUX [Suspect]
     Active Substance: CETUXIMAB
     Indication: OROPHARYNGEAL CANCER
     Dosage: 250 MG/M2, WEEKLY (1/W)
     Route: 041

REACTIONS (3)
  - Sepsis [Fatal]
  - Ileus [Fatal]
  - Mucosal inflammation [Unknown]

NARRATIVE: CASE EVENT DATE: 2018
